FAERS Safety Report 7978093-4 (Version None)
Quarter: 2011Q4

REPORT INFORMATION
  Report Type: 
  Country: None (occurrence: None)
  Receive Date: 20111212
  Receipt Date: 20111212
  Transmission Date: 20120403
  Serious: Yes (Other)
  Sender: FDA-Public Use
  Company Number: None

PATIENT
  Sex: Female
  Weight: 58.06 kg

DRUGS (4)
  1. OMNITROPE [Suspect]
     Indication: DWARFISM
     Dosage: 0.1MG DAILY SUBCUTANEOUSLY
     Route: 058
     Dates: start: 20111116, end: 20111118
  2. OMNITROPE [Suspect]
     Indication: HYPOTHALAMO-PITUITARY DISORDER
     Dosage: 0.1MG DAILY SUBCUTANEOUSLY
     Route: 058
     Dates: start: 20111116, end: 20111118
  3. FENOFIBRATE [Concomitant]
  4. SYNTHROID [Concomitant]

REACTIONS (2)
  - RASH [None]
  - URTICARIA [None]
